FAERS Safety Report 15895665 (Version 2)
Quarter: 2019Q1

REPORT INFORMATION
  Report Type: Report from Study
  Country: US (occurrence: US)
  Receive Date: 20190131
  Receipt Date: 20190325
  Transmission Date: 20190417
  Serious: Yes (Hospitalization, Other)
  Sender: FDA-Public Use
  Company Number: US-ROCHE-1813951

PATIENT

DRUGS (1)
  1. ALTEPLASE. [Suspect]
     Active Substance: ALTEPLASE
     Indication: CEREBRAL HAEMORRHAGE
     Dosage: INTRAVENTRICULAR CATHETER,?UP TO 9 DOSES OF 1.0 MG (AS PER PROTOCOL).
     Route: 050

REACTIONS (3)
  - Seizure [Recovered/Resolved]
  - Gastric ulcer [Recovered/Resolved]
  - Cerebral ischaemia [Unknown]

NARRATIVE: CASE EVENT DATE: 20160725
